FAERS Safety Report 10266089 (Version 1)
Quarter: 2014Q2

REPORT INFORMATION
  Report Type: Spontaneous
  Country: DE (occurrence: DE)
  Receive Date: 20140627
  Receipt Date: 20140627
  Transmission Date: 20141212
  Serious: Yes (Congenital Anomaly)
  Sender: FDA-Public Use
  Company Number: DE-TEVA-489286GER

PATIENT
  Age: 0 Year
  Sex: Female

DRUGS (3)
  1. RANITIDINE [Suspect]
     Route: 064
  2. PANTOPRAZOL 20 MG [Suspect]
     Route: 064
  3. VITAMIN B KOMPLEX + FOLSAEURE [Concomitant]
     Route: 064

REACTIONS (2)
  - Haemangioma congenital [Unknown]
  - Foetal exposure during pregnancy [Unknown]
